FAERS Safety Report 10143222 (Version 1)
Quarter: 2014Q2

REPORT INFORMATION
  Report Type: Spontaneous
  Country: US (occurrence: None)
  Receive Date: 20140429
  Receipt Date: 20140429
  Transmission Date: 20141212
  Serious: Yes (Life-Threatening, Disabling, Other)
  Sender: FDA-Public Use
  Company Number: None

PATIENT
  Age: 21 Year
  Sex: Female
  Weight: 60.33 kg

DRUGS (1)
  1. NEXPLANON [Suspect]
     Dates: start: 20131218, end: 20140306

REACTIONS (4)
  - Weight decreased [None]
  - Nausea [None]
  - Mood swings [None]
  - Gastritis fungal [None]
